FAERS Safety Report 11839428 (Version 3)
Quarter: 2016Q2

REPORT INFORMATION
  Report Type: Spontaneous
  Country: US (occurrence: US)
  Receive Date: 20151216
  Receipt Date: 20160407
  Transmission Date: 20160815
  Serious: Yes (Other)
  Sender: FDA-Public Use
  Company Number: US-ABBVIE-15P-163-1517614-00

PATIENT
  Sex: Female

DRUGS (1)
  1. HUMIRA [Suspect]
     Active Substance: ADALIMUMAB
     Indication: CROHN^S DISEASE
     Route: 058

REACTIONS (7)
  - Hypophagia [Unknown]
  - Alopecia [Unknown]
  - Precancerous skin lesion [Unknown]
  - Crohn^s disease [Unknown]
  - Abdominal pain [Unknown]
  - Gastrointestinal pain [Unknown]
  - Arthritis [Unknown]
